FAERS Safety Report 8919900 (Version 2)
Quarter: 2012Q4

REPORT INFORMATION
  Report Type: 
  Country: JP (occurrence: JP)
  Receive Date: 20121121
  Receipt Date: 20121127
  Transmission Date: 20130627
  Serious: Yes (Hospitalization)
  Sender: FDA-Public Use
  Company Number: JP-009507513-1211JPN006935

PATIENT
  Age: 76 Year
  Sex: Female
  Weight: 43 kg

DRUGS (19)
  1. MENESIT [Suspect]
     Dosage: 100 mg, bid
     Route: 048
     Dates: start: 20120313, end: 20120604
  2. MENESIT [Suspect]
     Dosage: 150 mg, tid
     Route: 048
     Dates: start: 20120727, end: 20120801
  3. MENESIT [Suspect]
     Dosage: 50 mg, UNK
     Route: 048
     Dates: start: 20120802, end: 20120806
  4. REQUIP [Concomitant]
     Dosage: 6 mg, UNK
     Route: 048
     Dates: end: 20120709
  5. REQUIP [Concomitant]
     Dosage: 5 mg, UNK
     Route: 048
     Dates: start: 20120710, end: 20120716
  6. REQUIP [Concomitant]
     Dosage: 4 mg, UNK
     Route: 048
     Dates: start: 20120717, end: 20120726
  7. REQUIP [Concomitant]
     Dosage: 3 mg, UNK
     Route: 048
     Dates: start: 20120727, end: 20120813
  8. REQUIP [Concomitant]
     Dosage: 6 mg, UNK
     Route: 048
     Dates: start: 20120814
  9. ADALAT [Concomitant]
     Dosage: Daily dosage unknown
     Route: 048
  10. SYMMETREL [Concomitant]
     Dosage: Daily dosage unknown
     Route: 048
  11. TAKEPRON [Concomitant]
     Dosage: Daily dosage unknown
     Route: 048
  12. RIVOTRIL [Concomitant]
     Dosage: Daily dosage unknown
     Route: 048
  13. NAUZELIN [Concomitant]
     Dosage: Daily dosage unknown
     Route: 048
  14. MAGLAX (MAGNESIUM OXIDE) [Concomitant]
     Dosage: Daily dosage unknown
     Route: 048
  15. HYALEIN [Concomitant]
     Dosage: Daily dosage unknown
     Route: 047
  16. TIMOPTOL 0.25% [Concomitant]
     Dosage: Daily dosage unknown
     Route: 047
  17. MENESIT [Suspect]
     Indication: PARKINSON^S DISEASE
     Dosage: 250 mg, qd
     Route: 048
     Dates: start: 20120605, end: 20120726
  18. MENESIT [Suspect]
     Dosage: 100 mg, qd
     Route: 048
     Dates: start: 20120124, end: 20120213
  19. MENESIT [Suspect]
     Dosage: 150 mg, qd
     Route: 048
     Dates: start: 20120214, end: 20120312

REACTIONS (1)
  - Posture abnormal [Recovered/Resolved]
